FAERS Safety Report 7782647-8 (Version None)
Quarter: 2011Q3

REPORT INFORMATION
  Report Type: 
  Country: None (occurrence: None)
  Receive Date: 20110928
  Receipt Date: 20110923
  Transmission Date: 20111222
  Serious: Yes (Hospitalization)
  Sender: FDA-Public Use
  Company Number: PHHY2011CN75316

PATIENT
  Age: 42 Year
  Sex: Female

DRUGS (1)
  1. CARBAMAZEPINE [Suspect]
     Dosage: UNK UKN, UNK
     Route: 048

REACTIONS (12)
  - PYREXIA [None]
  - EYE SWELLING [None]
  - WHITE BLOOD CELL COUNT INCREASED [None]
  - RASH ERYTHEMATOUS [None]
  - SKIN LESION [None]
  - MUCOSAL ULCERATION [None]
  - HERPES ZOSTER [None]
  - SWELLING [None]
  - ERYTHEMA MULTIFORME [None]
  - INFLAMMATION [None]
  - ADHESION [None]
  - PRURITUS [None]
